FAERS Safety Report 9232888 (Version 3)
Quarter: 2013Q2

REPORT INFORMATION
  Report Type: Spontaneous
  Country: US (occurrence: US)
  Receive Date: 20130416
  Receipt Date: 20130528
  Transmission Date: 20140414
  Serious: Yes (Other)
  Sender: FDA-Public Use
  Company Number: US-TEVA-398040USA

PATIENT
  Age: 49 Year
  Sex: Female

DRUGS (2)
  1. CLARAVIS [Suspect]
     Indication: HIDRADENITIS
     Route: 048
  2. CLARAVIS [Suspect]
     Indication: ACNE CYSTIC

REACTIONS (7)
  - Diverticulitis [Recovering/Resolving]
  - Diarrhoea haemorrhagic [Recovered/Resolved]
  - Haematochezia [Recovered/Resolved]
  - Abdominal pain [Recovering/Resolving]
  - Food poisoning [Recovered/Resolved]
  - Haemorrhoids [Unknown]
  - Gastritis [Unknown]
